FAERS Safety Report 6814488-X (Version None)
Quarter: 2010Q3

REPORT INFORMATION
  Report Type: 
  Country: None (occurrence: None)
  Receive Date: 20100702
  Receipt Date: 20100622
  Transmission Date: 20110219
  Serious: Yes (Other)
  Sender: FDA-Public Use
  Company Number: PHHY2010DE41269

PATIENT
  Sex: Female
  Weight: 62 kg

DRUGS (3)
  1. CGS 20267 T30748+ [Suspect]
     Indication: BREAST CANCER
     Dosage: 2.5 MG, DAILY
     Route: 048
     Dates: start: 20090602
  2. ZOMETA [Suspect]
     Dosage: 4 MG, EVERY 6 MONTHS
     Route: 042
     Dates: start: 20090831, end: 20100223
  3. TARGIN [Concomitant]
     Dosage: UNK
     Dates: start: 20080101

REACTIONS (3)
  - DENTAL OPERATION [None]
  - PERIODONTITIS [None]
  - RENAL DISORDER [None]
